FAERS Safety Report 5342222-1 (Version None)
Quarter: 2007Q2

REPORT INFORMATION
  Report Type: 
  Country: None (occurrence: None)
  Receive Date: 20070412
  Receipt Date: 20070131
  Transmission Date: 20071010
  Serious: No
  Sender: FDA-Public Use
  Company Number: IPX00020

PATIENT
  Age: 9 Year
  Sex: Male
  Weight: 27 kg

DRUGS (2)
  1. IPLEX [Suspect]
     Indication: INSULIN-LIKE GROWTH FACTOR DECREASED
     Dosage: 28 MG/DAILY/SC
     Route: 058
     Dates: start: 20070120
  2. SYNTHROID (50 MCG DAILY) [Concomitant]

REACTIONS (2)
  - FLATULENCE [None]
  - INJECTION SITE ERYTHEMA [None]
